FAERS Safety Report 6110133-X (Version None)
Quarter: 2009Q1

REPORT INFORMATION
  Report Type: 
  Country: None (occurrence: None)
  Receive Date: 20090310
  Receipt Date: 20090227
  Transmission Date: 20090719
  Serious: Yes (Death)
  Sender: FDA-Public Use
  Company Number: US-AVENTIS-200911042EU

PATIENT

DRUGS (3)
  1. FUROSEMIDE [Suspect]
  2. DIGOXIN [Suspect]
  3. LOSARTAN [Suspect]

REACTIONS (2)
  - BRADYARRHYTHMIA [None]
  - HYPOTENSION [None]
